FAERS Safety Report 9339454 (Version 1)
Quarter: 2013Q2

REPORT INFORMATION
  Report Type: Spontaneous
  Country: GB (occurrence: GB)
  Receive Date: 20130610
  Receipt Date: 20130610
  Transmission Date: 20140414
  Serious: Yes (Hospitalization)
  Sender: FDA-Public Use
  Company Number: GB-SANOFI-AVENTIS-2013SA052329

PATIENT
  Age: 87 Year
  Sex: Male

DRUGS (6)
  1. ETHAMBUTOL [Suspect]
     Indication: TUBERCULOSIS BLADDER
     Route: 065
  2. ISONIAZID [Suspect]
     Indication: TUBERCULOSIS BLADDER
     Route: 065
  3. PYRAZINAMIDE [Suspect]
     Indication: TUBERCULOSIS BLADDER
     Route: 065
  4. RIFAMPICIN [Suspect]
     Indication: TUBERCULOSIS BLADDER
     Route: 065
  5. PHENYTOIN [Suspect]
     Indication: EPILEPSY
     Route: 065
  6. AMOXICILLIN [Concomitant]
     Indication: URINARY TRACT INFECTION

REACTIONS (20)
  - Fall [Recovered/Resolved]
  - Toxicity to various agents [Recovered/Resolved]
  - General physical health deterioration [Recovered/Resolved]
  - Blood albumin decreased [Recovering/Resolving]
  - Past-pointing [Recovered/Resolved]
  - Malaise [Recovered/Resolved]
  - Mobility decreased [Recovered/Resolved]
  - Diplopia [Recovered/Resolved]
  - Dysphagia [Recovered/Resolved]
  - Choking [Recovered/Resolved]
  - Nystagmus [Recovered/Resolved]
  - Dizziness [Recovered/Resolved]
  - Ataxia [Recovered/Resolved]
  - Balance disorder [Recovered/Resolved]
  - Dysarthria [Recovered/Resolved]
  - Intention tremor [Recovered/Resolved]
  - Confusional state [Recovered/Resolved]
  - Decreased appetite [Recovering/Resolving]
  - Nausea [Recovered/Resolved]
  - Vomiting [Recovered/Resolved]
